FAERS Safety Report 4573010-1 (Version None)
Quarter: 2005Q1

REPORT INFORMATION
  Report Type: 
  Country: None (occurrence: None)
  Receive Date: 20050204
  Receipt Date: 20050128
  Transmission Date: 20050727
  Serious: Yes (Hospitalization)
  Sender: FDA-Public Use
  Company Number: 2003036742

PATIENT
  Age: 56 Year
  Sex: Male
  Weight: 62 kg

DRUGS (2)
  1. TAHOR (ATORVASTATIN) [Suspect]
     Indication: DYSLIPIDAEMIA
     Dosage: 20 MG (DAILY), ORAL
     Route: 048
     Dates: start: 20030220
  2. TRIMETAZIDINE (TRIMETAZIDINE) [Concomitant]

REACTIONS (5)
  - ABDOMINAL PAIN [None]
  - CHOLECYSTITIS [None]
  - CHOLELITHIASIS [None]
  - RENAL COLIC [None]
  - TRANSAMINASES INCREASED [None]
